FAERS Safety Report 24440186 (Version 1)
Quarter: 2024Q4

REPORT INFORMATION
  Report Type: Spontaneous
  Country: US (occurrence: US)
  Receive Date: 20241016
  Receipt Date: 20241016
  Transmission Date: 20250115
  Serious: No
  Sender: RANBAXY
  Company Number: US-SUN PHARMACEUTICAL INDUSTRIES LTD-2024R1-450740

PATIENT
  Sex: Female

DRUGS (1)
  1. WINLEVI [Suspect]
     Active Substance: CLASCOTERONE
     Indication: Acne cystic
     Dosage: STRENGHT 1 PERCENT CREAM
     Route: 065

REACTIONS (5)
  - Liquid product physical issue [Unknown]
  - Application site pain [Unknown]
  - Skin irritation [Unknown]
  - Product use issue [Unknown]
  - Skin abrasion [Unknown]
